FAERS Safety Report 9299831 (Version 1)
Quarter: 2013Q1

REPORT INFORMATION
  Report Type: Spontaneous
  Country: US (occurrence: None)
  Receive Date: 20121227
  Receipt Date: 20121227
  Transmission Date: 20140127
  Serious: Yes (Other)
  Sender: FDA-Public Use
  Company Number: PHEH2012US018556

PATIENT
  Age: 9 Year
  Sex: Male

DRUGS (10)
  1. AFINITOR [Suspect]
     Indication: TUBEROUS SCLEROSIS
     Route: 048
     Dates: start: 20120815
  2. SABRIL (VIGABATRIN) [Concomitant]
  3. CLOBAZAM (CLOBAZAM) [Concomitant]
  4. RISPERDAL (RISPERIDONE) [Concomitant]
  5. PREVACID (LANSOPRAZOLE) [Concomitant]
  6. TENEX (GUANFACINE HYDROCHLORIDE) [Concomitant]
  7. LAMICTAL (LAMOTRIGINE) [Concomitant]
  8. VIGABATRIN (VIGABATRIN) [Concomitant]
  9. ONFI (CLOBAZAM) [Concomitant]
  10. DIASTAT (ATROPA BELLADONNA TINCTURE, CHLOROFORM AND MORPHINE TINCTURE, KAOLIN, PECTIN, PHTHALYSULFATHIAZOLE, STREPTOMYCIN) [Concomitant]

REACTIONS (3)
  - Convulsion [None]
  - Rash [None]
  - Drug level decreased [None]
